FAERS Safety Report 20231759 (Version 3)
Quarter: 2022Q2

REPORT INFORMATION
  Report Type: Spontaneous
  Country: US (occurrence: US)
  Receive Date: 20211227
  Receipt Date: 20220609
  Transmission Date: 20220721
  Serious: No
  Sender: FDA-Public Use
  Company Number: US-AVEO ONCOLOGY-2021-AVEO-US003718

PATIENT

DRUGS (1)
  1. FOTIVDA [Suspect]
     Active Substance: TIVOZANIB HYDROCHLORIDE
     Indication: Renal cell carcinoma
     Dosage: 1.34 MG, DAILY, TAKE 1 CAPSULE PO QD FOR 21 DAYS THEN 7 DAYS OFF
     Dates: start: 20211112, end: 20211130

REACTIONS (3)
  - Nausea [Unknown]
  - Vomiting [None]
  - Disease progression [Unknown]
